FAERS Safety Report 8947446 (Version 1)
Quarter: 2012Q4

REPORT INFORMATION
  Report Type: 
  Country: IL (occurrence: IL)
  Receive Date: 20121204
  Receipt Date: 20121204
  Transmission Date: 20130627
  Serious: Yes (Other)
  Sender: FDA-Public Use
  Company Number: IL-ROCHE-1159223

PATIENT

DRUGS (9)
  1. RITUXIMAB [Suspect]
     Indication: NON-HODGKIN^S LYMPHOMA RECURRENT
     Route: 065
  2. IBRITUMOMAB TIUXETAN [Suspect]
     Indication: NON-HODGKIN^S LYMPHOMA RECURRENT
     Dosage: 0.4 mCi/kg (capped at 32 mCi) on day -14 before ASCT
     Route: 065
  3. CARMUSTINE [Suspect]
     Indication: NON-HODGKIN^S LYMPHOMA RECURRENT
     Dosage: on day -6
     Route: 065
  4. ETOPOSIDE [Suspect]
     Indication: NON-HODGKIN^S LYMPHOMA RECURRENT
     Dosage: on day -1
     Route: 065
  5. CYTARABINE [Suspect]
     Indication: NON-HODGKIN^S LYMPHOMA RECURRENT
     Dosage: every 12 hours on days -5 to -2
     Route: 065
  6. MELPHALAN [Suspect]
     Indication: NON-HODGKIN^S LYMPHOMA RECURRENT
     Route: 065
  7. SULFAMETHOXAZOLE/TRIMETHOPRIM [Concomitant]
     Indication: ANTIFUNGAL PROPHYLAXIS
  8. FILGRASTIM [Concomitant]
     Dosage: from day 4 until engraftment
     Route: 065
  9. VALACYCLOVIR [Concomitant]
     Indication: ANTIVIRAL PROPHYLAXIS
     Dosage: for 1 month
     Route: 065

REACTIONS (6)
  - Pneumonia [Unknown]
  - Febrile neutropenia [Unknown]
  - Mucosal inflammation [Unknown]
  - Cardiotoxicity [Unknown]
  - Hepatotoxicity [Unknown]
  - Fungal infection [Unknown]
